FAERS Safety Report 8071882-X (Version None)
Quarter: 2012Q1

REPORT INFORMATION
  Report Type: 
  Country: None (occurrence: None)
  Receive Date: 20120126
  Receipt Date: 20120120
  Transmission Date: 20120608
  Serious: No
  Sender: FDA-Public Use
  Company Number: US-BIOGENIDEC-2012BI002452

PATIENT
  Age: 69 Year
  Sex: Female

DRUGS (1)
  1. AVONEX [Suspect]
     Indication: MULTIPLE SCLEROSIS
     Route: 030
     Dates: start: 20110428

REACTIONS (5)
  - SKIN DISCOLOURATION [None]
  - CONTUSION [None]
  - ALOPECIA [None]
  - INJECTION SITE HAEMORRHAGE [None]
  - ENTERITIS INFECTIOUS [None]
